FAERS Safety Report 8020726-0 (Version None)
Quarter: 2012Q1

REPORT INFORMATION
  Report Type: 
  Country: None (occurrence: None)
  Receive Date: 20120104
  Receipt Date: 20111228
  Transmission Date: 20120608
  Serious: Yes (Other)
  Sender: FDA-Public Use
  Company Number: US-ASTRAZENECA-2009SE22831

PATIENT
  Age: 26 Year
  Sex: Male
  Weight: 96.6 kg

DRUGS (20)
  1. GEODON [Concomitant]
     Route: 048
     Dates: start: 20040520
  2. BENZTROPINE MES [Concomitant]
     Dosage: ONE - HALF TABLET
     Route: 048
     Dates: start: 20040216
  3. FLUOXETINE HYDROCHLORIDE [Concomitant]
     Route: 048
     Dates: start: 20040216
  4. SEROQUEL [Suspect]
     Dosage: 25 MG ONE - HALF TABLET ORALLY 2 TIMES DAILY AS NEEDED
     Route: 048
     Dates: start: 20040625
  5. DEPAKOTE [Concomitant]
     Route: 048
     Dates: start: 20030610
  6. FLUPHENAZINE HCL [Concomitant]
     Route: 048
     Dates: start: 20030715
  7. RISPERDAL [Concomitant]
     Route: 048
     Dates: start: 20040511
  8. SEROQUEL [Suspect]
     Indication: PSYCHOTIC DISORDER
     Dosage: DOSAGE VARIED
     Route: 048
     Dates: start: 20031201
  9. BENZTROPINE MES [Concomitant]
     Route: 048
     Dates: start: 20030715
  10. SEROQUEL [Suspect]
     Indication: MENTAL DISORDER
     Dosage: DOSAGE VARIED
     Route: 048
     Dates: start: 20031201
  11. SEROQUEL [Suspect]
     Dosage: 25 MG ONE - HALF TABLET ORALLY 2 TIMES DAILY AS NEEDED
     Route: 048
     Dates: start: 20040625
  12. ZYPREXA [Concomitant]
     Dates: start: 20030610
  13. SIMVASTATIN [Concomitant]
     Dates: start: 20100101
  14. LORAZEPAM [Concomitant]
     Indication: ANXIETY
     Dates: start: 20040520
  15. KLONOPIN [Concomitant]
     Dates: start: 20060701
  16. TRAZODONE HCL [Concomitant]
     Dosage: ONE-HALF TO ONE TABLET
     Route: 048
     Dates: start: 20040622
  17. GEODON [Concomitant]
     Dates: start: 20040501, end: 20071101
  18. ZYPREXA [Concomitant]
     Dates: start: 20050501
  19. SYMBYAX [Concomitant]
  20. FLUPHENAZINE HCL [Concomitant]
     Dosage: ONE-HALF TABLET
     Route: 048
     Dates: start: 20040216

REACTIONS (5)
  - TYPE 2 DIABETES MELLITUS [None]
  - DIABETIC FOOT [None]
  - TARDIVE DYSKINESIA [None]
  - DIABETIC RETINOPATHY [None]
  - TREMOR [None]
